FAERS Safety Report 7619810-2 (Version None)
Quarter: 2011Q3

REPORT INFORMATION
  Report Type: 
  Country: None (occurrence: None)
  Receive Date: 20110719
  Receipt Date: 20110707
  Transmission Date: 20111222
  Serious: Yes (Hospitalization)
  Sender: FDA-Public Use
  Company Number: FR-SANOFI-AVENTIS-2011SA043018

PATIENT
  Age: 86 Year
  Sex: Male

DRUGS (7)
  1. ALLOPURINOL [Concomitant]
     Route: 048
  2. FUROSEMIDE [Concomitant]
     Route: 048
  3. CLAFORAN [Suspect]
     Route: 042
     Dates: start: 20101227
  4. NIPENT [Suspect]
     Route: 042
     Dates: start: 20101217
  5. CIPROFLOXACIN [Suspect]
     Route: 042
     Dates: start: 20101227
  6. ACETAMINOPHEN [Concomitant]
     Route: 048
  7. PREVISCAN [Concomitant]
     Route: 048
     Dates: end: 20101227

REACTIONS (2)
  - CONFUSIONAL STATE [None]
  - RENAL FAILURE ACUTE [None]
